FAERS Safety Report 6932397-2 (Version None)
Quarter: 2010Q3

REPORT INFORMATION
  Report Type: 
  Country: None (occurrence: None)
  Receive Date: 20100817
  Receipt Date: 20100805
  Transmission Date: 20110219
  Serious: Yes (Hospitalization, Disabling)
  Sender: FDA-Public Use
  Company Number: 1-18219899

PATIENT
  Age: 54 Year
  Sex: Female
  Weight: 62.5964 kg

DRUGS (10)
  1. QUALAQUIN [Suspect]
     Indication: MUSCLE SPASMS
     Dosage: , ORAL
     Route: 048
     Dates: start: 20051003
  2. QUININE 325 MG (IVAX, TEVA) [Suspect]
     Indication: MUSCLE SPASMS
     Dosage: , ORAL
     Route: 048
     Dates: start: 20070402
  3. SYNTHROID [Concomitant]
  4. CELEBREX [Concomitant]
  5. METHOTREXATE ^HORMONES^ [Concomitant]
  6. FISH OIL [Concomitant]
  7. CALCIUM [Concomitant]
  8. MULTI-VITAMIN [Concomitant]
  9. VITAMIN E [Concomitant]
  10. MARIJUANA [Concomitant]

REACTIONS (19)
  - ABDOMINAL PAIN [None]
  - ABDOMINAL PAIN UPPER [None]
  - ANXIETY [None]
  - ASTHENIA [None]
  - CHEST PAIN [None]
  - DEAFNESS [None]
  - DISCOMFORT [None]
  - DRUG HYPERSENSITIVITY [None]
  - FEAR [None]
  - HEADACHE [None]
  - HYPOGLYCAEMIA [None]
  - LIVER DISORDER [None]
  - NAUSEA [None]
  - NERVOUSNESS [None]
  - PAIN [None]
  - PANCYTOPENIA [None]
  - PYREXIA [None]
  - TINNITUS [None]
  - VOMITING [None]
